FAERS Safety Report 21342193 (Version 5)
Quarter: 2024Q1

REPORT INFORMATION
  Report Type: Report from Study
  Country: US (occurrence: US)
  Receive Date: 20220916
  Receipt Date: 20240109
  Transmission Date: 20240410
  Serious: Yes (Hospitalization, Other)
  Sender: FDA-Public Use
  Company Number: US-TAKEDA-2022TUS064301

PATIENT
  Sex: Female
  Weight: 100 kg

DRUGS (4)
  1. VEDOLIZUMAB [Suspect]
     Active Substance: VEDOLIZUMAB
     Indication: Colitis ulcerative
     Dosage: 300 MILLIGRAM
     Route: 042
     Dates: start: 20220826
  2. PREDNISONE [Concomitant]
     Active Substance: PREDNISONE
     Dosage: UNK
  3. ZYRTEC [Concomitant]
     Active Substance: CETIRIZINE HYDROCHLORIDE
     Dosage: UNK
  4. COLAZAL [Concomitant]
     Active Substance: BALSALAZIDE DISODIUM
     Dosage: UNK

REACTIONS (7)
  - Colitis ulcerative [Unknown]
  - Rectal haemorrhage [Unknown]
  - Impaired work ability [Unknown]
  - Illness [Unknown]
  - Stress [Unknown]
  - Product dose omission issue [Unknown]
  - Influenza [Unknown]
